FAERS Safety Report 4351771-4 (Version None)
Quarter: 2004Q2

REPORT INFORMATION
  Report Type: 
  Country: None (occurrence: None)
  Receive Date: 20040503
  Receipt Date: 20040420
  Transmission Date: 20050107
  Serious: Yes (Other)
  Sender: FDA-Public Use
  Company Number: CN-GLAXOSMITHKLINE-B0330591A

PATIENT
  Sex: Male

DRUGS (1)
  1. HEPTODIN [Suspect]
     Dosage: 100MG PER DAY

REACTIONS (3)
  - HEPATITIS [None]
  - HEPATITIS B VIRUS [None]
  - VIRAL LOAD INCREASED [None]
